FAERS Safety Report 23153251 (Version 1)
Quarter: 2023Q4

REPORT INFORMATION
  Report Type: Spontaneous
  Country: US (occurrence: None)
  Receive Date: 20231106
  Receipt Date: 20231106
  Transmission Date: 20240110
  Serious: Yes (Other)
  Sender: FDA-Public Use
  Company Number: None

PATIENT
  Age: 90 Year
  Sex: Male

DRUGS (1)
  1. LENALIDOMIDE [Suspect]
     Active Substance: LENALIDOMIDE
     Indication: B-cell lymphoma
     Dosage: 5MG QD ORAL
     Route: 048
     Dates: start: 20221125, end: 20231025

REACTIONS (4)
  - Neutropenia [None]
  - Thrombocytopenia [None]
  - Therapy interrupted [None]
  - Asthenia [None]

NARRATIVE: CASE EVENT DATE: 20231025
